APPROVED DRUG PRODUCT: IMODIUM
Active Ingredient: LOPERAMIDE HYDROCHLORIDE
Strength: 2MG **Federal Register determination that product was not discontinued or withdrawn for safety or effectiveness reasons**
Dosage Form/Route: CAPSULE;ORAL
Application: N017690 | Product #001
Applicant: JOHNSON AND JOHNSON CONSUMER INC MCNEIL CONSUMER HEALTHCARE DIV
Approved: Approved Prior to Jan 1, 1982 | RLD: No | RS: No | Type: DISCN